FAERS Safety Report 17021719 (Version 2)
Quarter: 2019Q4

REPORT INFORMATION
  Report Type: Spontaneous
  Country: DE (occurrence: DE)
  Receive Date: 20191112
  Receipt Date: 20191127
  Transmission Date: 20200122
  Serious: Yes (Death, Hospitalization, Other)
  Sender: FDA-Public Use
  Company Number: NVSC2019DE032141

PATIENT
  Sex: Male
  Weight: 65 kg

DRUGS (10)
  1. METEX (METHOTREXATE SODIUM) [Suspect]
     Active Substance: METHOTREXATE SODIUM
     Dosage: UNK UNK, QD
     Route: 065
  2. FOLIC ACID. [Concomitant]
     Active Substance: FOLIC ACID
     Indication: PRODUCT USED FOR UNKNOWN INDICATION
     Dosage: UNK, QW (24H AFTER METHOTREXATE)
     Route: 048
  3. FURADANTINE [Suspect]
     Active Substance: NITROFURANTOIN
     Indication: URINARY TRACT INFECTION
     Dosage: UNK
     Route: 065
  4. VITAMIN D [Concomitant]
     Active Substance: VITAMIN D NOS
     Indication: PRODUCT USED FOR UNKNOWN INDICATION
     Dosage: UNK
     Route: 065
  5. METAMIZOLE [Suspect]
     Active Substance: METAMIZOLE
     Indication: PAIN
     Dosage: UNK
     Route: 065
     Dates: start: 2019
  6. PREDNISOLONE. [Concomitant]
     Active Substance: PREDNISOLONE
     Indication: PRODUCT USED FOR UNKNOWN INDICATION
     Dosage: UNK, QD (1-0-0)
     Route: 065
  7. METAMIZOLE [Suspect]
     Active Substance: METAMIZOLE
     Indication: ACCIDENT
     Dosage: UNK (4X40 DROPS)
     Route: 048
     Dates: start: 20190831, end: 20190906
  8. METEX (METHOTREXATE SODIUM) [Suspect]
     Active Substance: METHOTREXATE SODIUM
     Indication: RHEUMATOID ARTHRITIS
     Dosage: 15 MG, QW
     Route: 048
     Dates: start: 200908, end: 20190831
  9. LANTAREL [Suspect]
     Active Substance: METHOTREXATE SODIUM
     Indication: RHEUMATOID ARTHRITIS
     Dosage: 10 MG, QW
     Route: 048
     Dates: start: 2007, end: 20190831
  10. LANTAREL [Suspect]
     Active Substance: METHOTREXATE SODIUM
     Dosage: 1 DF, QD
     Route: 048
     Dates: start: 20190831, end: 20190906

REACTIONS (36)
  - Femur fracture [Fatal]
  - Plaque shift [Unknown]
  - Road traffic accident [Fatal]
  - Wound infection [Fatal]
  - Infarction [Fatal]
  - Hypotension [Unknown]
  - Urosepsis [Fatal]
  - Leukopenia [Unknown]
  - Hypochromic anaemia [Unknown]
  - Hepatic cyst [Unknown]
  - Renal cyst [Unknown]
  - C-reactive protein increased [Unknown]
  - Upper gastrointestinal haemorrhage [Fatal]
  - Urinary tract infection [Unknown]
  - Bladder obstruction [Unknown]
  - Urinary tract disorder [Unknown]
  - Respiratory rate increased [Unknown]
  - Febrile neutropenia [Fatal]
  - Melaena [Fatal]
  - Ulcerative gastritis [Fatal]
  - Thrombocytopenia [Fatal]
  - Dysarthria [Fatal]
  - Polyuria [Fatal]
  - Cholecystitis [Unknown]
  - Cholelithiasis [Unknown]
  - Pleural effusion [Unknown]
  - Increased bronchial secretion [Unknown]
  - Diarrhoea [Unknown]
  - Mucosal inflammation [Unknown]
  - Bladder disorder [Unknown]
  - Product prescribing error [Fatal]
  - Pancytopenia [Fatal]
  - Agranulocytosis [Fatal]
  - Pneumonia aspiration [Fatal]
  - Dysphagia [Fatal]
  - Tachycardia [Unknown]

NARRATIVE: CASE EVENT DATE: 20190831
